FAERS Safety Report 9417132 (Version 1)
Quarter: 2013Q3

REPORT INFORMATION
  Report Type: Spontaneous
  Country: CN (occurrence: CN)
  Receive Date: 20130722
  Receipt Date: 20130722
  Transmission Date: 20140515
  Serious: Yes (Other)
  Sender: FDA-Public Use
  Company Number: 2013P1013012

PATIENT
  Age: 33 Year
  Sex: Male

DRUGS (1)
  1. ALBENDAZOLE [Suspect]
     Indication: ASCARIASIS
     Dosage: A TWO-TABLET DOSAGE WAS TAKEN TWICE  BEFORE ADVERSE EVENT.
     Route: 048
     Dates: start: 20120629, end: 20120629

REACTIONS (1)
  - Anaphylactoid reaction [None]
